FAERS Safety Report 23212485 (Version 1)
Quarter: 2023Q4

REPORT INFORMATION
  Report Type: Spontaneous
  Country: US (occurrence: None)
  Receive Date: 20231121
  Receipt Date: 20231121
  Transmission Date: 20240109
  Serious: No
  Sender: FDA-Public Use
  Company Number: None

PATIENT
  Age: 57 Year
  Sex: Female
  Weight: 81 kg

DRUGS (2)
  1. PAXLOVID [Suspect]
     Active Substance: NIRMATRELVIR\RITONAVIR
     Indication: COVID-19
     Dosage: OTHER QUANTITY : 30 TABLET(S);?FREQUENCY : TWICE A DAY;?
     Route: 048
     Dates: start: 20231120, end: 20231120
  2. ozempic hcq [Concomitant]

REACTIONS (6)
  - Rash erythematous [None]
  - Rash [None]
  - Rash [None]
  - Rash erythematous [None]
  - Feeling hot [None]
  - Swelling face [None]

NARRATIVE: CASE EVENT DATE: 20231121
